FAERS Safety Report 8747039 (Version 3)
Quarter: 2012Q4

REPORT INFORMATION
  Report Type: 
  Country: US (occurrence: US)
  Receive Date: 20120827
  Receipt Date: 20121030
  Transmission Date: 20130627
  Serious: Yes (Other)
  Sender: FDA-Public Use
  Company Number: US-GILEAD-2012-0060169

PATIENT
  Sex: Female

DRUGS (4)
  1. LETAIRIS [Suspect]
     Indication: PULMONARY HYPERTENSION
     Dosage: UNK
  2. LETAIRIS [Suspect]
     Indication: COR PULMONALE CHRONIC
  3. LETAIRIS [Suspect]
     Indication: MITRAL VALVE INCOMPETENCE
  4. LETAIRIS [Suspect]
     Indication: THERAPEUTIC PROCEDURE

REACTIONS (3)
  - Pulmonary arterial hypertension [Unknown]
  - Hypertensive nephropathy [Unknown]
  - Transplant evaluation [Unknown]
